FAERS Safety Report 7414898-6 (Version None)
Quarter: 2011Q2

REPORT INFORMATION
  Report Type: 
  Country: None (occurrence: None)
  Receive Date: 20110414
  Receipt Date: 20110406
  Transmission Date: 20111010
  Serious: Yes (Other)
  Sender: FDA-Public Use
  Company Number: US-GENZYME-POMP-1001470

PATIENT

DRUGS (1)
  1. MYOZYME [Suspect]
     Indication: GLYCOGEN STORAGE DISEASE TYPE II
     Dosage: UNK MG/KG, Q2W
     Route: 042

REACTIONS (5)
  - OSTEOPENIA [None]
  - SPEECH DISORDER [None]
  - DEAFNESS NEUROSENSORY [None]
  - EYELID PTOSIS [None]
  - SPEECH DISORDER DEVELOPMENTAL [None]
